FAERS Safety Report 7314209-0 (Version None)
Quarter: 2011Q1

REPORT INFORMATION
  Report Type: 
  Country: None (occurrence: None)
  Receive Date: 20110225
  Receipt Date: 20100709
  Transmission Date: 20110831
  Serious: No
  Sender: FDA-Public Use
  Company Number: US-MYLANLABS-2010S1010253

PATIENT
  Age: 27 Year
  Sex: Female

DRUGS (3)
  1. AMNESTEEM [Suspect]
     Route: 048
     Dates: start: 20100524, end: 20100607
  2. IMPLANON [Concomitant]
  3. AMNESTEEM [Suspect]
     Indication: ACNE
     Route: 048
     Dates: start: 20100215, end: 20100517

REACTIONS (2)
  - PAIN IN EXTREMITY [None]
  - ARTHRALGIA [None]
